FAERS Safety Report 4941191-3 (Version None)
Quarter: 2006Q1

REPORT INFORMATION
  Report Type: 
  Country: None (occurrence: None)
  Receive Date: 20060310
  Receipt Date: 20060310
  Transmission Date: 20060701
  Serious: Yes (Life-Threatening, Hospitalization)
  Sender: FDA-Public Use
  Company Number: None

PATIENT
  Age: 76 Year
  Sex: Female
  Weight: 59.8748 kg

DRUGS (2)
  1. AVELOX [Suspect]
     Indication: BRONCHITIS
     Dosage: 400 MG X 1 DOSE PO
     Route: 048
     Dates: start: 20060309, end: 20060309
  2. AVELOX [Suspect]
     Indication: COUGH
     Dosage: 400 MG X 1 DOSE PO
     Route: 048
     Dates: start: 20060309, end: 20060309

REACTIONS (6)
  - BRUXISM [None]
  - DIARRHOEA [None]
  - GAIT DISTURBANCE [None]
  - LOSS OF CONSCIOUSNESS [None]
  - TREMOR [None]
  - URINARY INCONTINENCE [None]
